FAERS Safety Report 19452712 (Version 1)
Quarter: 2021Q2

REPORT INFORMATION
  Report Type: Spontaneous
  Country: US (occurrence: US)
  Receive Date: 20210623
  Receipt Date: 20210623
  Transmission Date: 20210717
  Serious: No
  Sender: FDA-Public Use
  Company Number: US-SA-2021SA206261

PATIENT
  Age: 63 Year
  Sex: Female

DRUGS (2)
  1. DUPIXENT [Suspect]
     Active Substance: DUPILUMAB
     Indication: IODINE DEFICIENCY
     Dosage: 300 MG, QOW
     Route: 058
     Dates: start: 20210203
  2. DUPIXENT [Suspect]
     Active Substance: DUPILUMAB
     Dosage: 300MG

REACTIONS (2)
  - Product use in unapproved indication [Unknown]
  - Injection site swelling [Unknown]

NARRATIVE: CASE EVENT DATE: 2021
